FAERS Safety Report 18162660 (Version 2)
Quarter: 2021Q1

REPORT INFORMATION
  Report Type: Spontaneous
  Country: US (occurrence: US)
  Receive Date: 20200818
  Receipt Date: 20210114
  Transmission Date: 20210419
  Serious: Yes (Hospitalization)
  Sender: FDA-Public Use
  Company Number: US-PFIZER INC-2020309828

PATIENT
  Age: 73 Year
  Sex: Female
  Weight: 64.86 kg

DRUGS (10)
  1. PALBOCICLIB [Suspect]
     Active Substance: PALBOCICLIB
     Dosage: UNK
     Dates: end: 20201130
  2. LETROZOLE. [Concomitant]
     Active Substance: LETROZOLE
     Dosage: 2.5 MG, DAILY
     Dates: start: 202008, end: 202012
  3. PALBOCICLIB [Suspect]
     Active Substance: PALBOCICLIB
     Indication: MALIGNANT MELANOMA
     Dosage: 125 MG, CYCLIC (DAILY FOR 21 ON AND 7 DAYS OFF)
     Route: 048
     Dates: start: 20200808
  4. PALBOCICLIB [Suspect]
     Active Substance: PALBOCICLIB
     Dosage: UNK
     Dates: start: 20200818
  5. VITAMIN D3 [Concomitant]
     Active Substance: CHOLECALCIFEROL
     Indication: BONE DEFORMITY
     Dosage: 10000 IU (5,000, TAKES TWO, 5 TIMES A WEEK)
     Dates: start: 2018
  6. IRON [Concomitant]
     Active Substance: IRON
     Indication: OSTEOPOROSIS
     Dosage: 65 MG, DAILY
     Dates: start: 202007
  7. IRON [Concomitant]
     Active Substance: IRON
     Indication: IRON DEFICIENCY
  8. FOLIC ACID. [Concomitant]
     Active Substance: FOLIC ACID
     Dosage: 1 MG, DAILY
     Dates: start: 201907, end: 202012
  9. PALBOCICLIB [Suspect]
     Active Substance: PALBOCICLIB
     Dosage: UNK
     Dates: start: 20201208
  10. PALBOCICLIB [Suspect]
     Active Substance: PALBOCICLIB
     Indication: BREAST CANCER FEMALE
     Dosage: 125 MG

REACTIONS (8)
  - Fall [Unknown]
  - Product dose omission issue [Not Recovered/Not Resolved]
  - SARS-CoV-2 test positive [Unknown]
  - SARS-CoV-2 test negative [Unknown]
  - Illness [Unknown]
  - Headache [Unknown]
  - Hip fracture [Unknown]
  - Pruritus [Unknown]

NARRATIVE: CASE EVENT DATE: 20200612
